FAERS Safety Report 24807865 (Version 4)
Quarter: 2025Q1

REPORT INFORMATION
  Report Type: Report from Study
  Country: US (occurrence: US)
  Receive Date: 20250106
  Receipt Date: 20250317
  Transmission Date: 20250409
  Serious: Yes (Other)
  Sender: TAKEDA
  Company Number: US-TAKEDA-2021TUS054871

PATIENT
  Age: 69 Year
  Sex: Male
  Weight: 82 kg

DRUGS (37)
  1. HUMAN IMMUNOGLOBULIN G [Suspect]
     Active Substance: HUMAN IMMUNOGLOBULIN G
     Indication: Immunodeficiency common variable
     Dosage: 30 GRAM, Q2WEEKS
     Dates: start: 20210618
  2. NOVOLOG [Concomitant]
     Active Substance: INSULIN ASPART
  3. ACETAMINOPHEN [Concomitant]
     Active Substance: ACETAMINOPHEN
  4. DIPHENHYDRAMINE [Concomitant]
     Active Substance: DIPHENHYDRAMINE
  5. EPINEPHRINE [Concomitant]
     Active Substance: EPINEPHRINE
  6. Lmx [Concomitant]
  7. SINGULAIR [Concomitant]
     Active Substance: MONTELUKAST SODIUM
  8. PRISTIQ EXTENDED-RELEASE [Concomitant]
     Active Substance: DESVENLAFAXINE SUCCINATE
  9. AIMOVIG [Concomitant]
     Active Substance: ERENUMAB-AOOE
  10. TRILIPIX [Concomitant]
     Active Substance: FENOFIBRIC ACID
  11. ZYRTEC [Concomitant]
     Active Substance: CETIRIZINE HYDROCHLORIDE
  12. XIIDRA [Concomitant]
     Active Substance: LIFITEGRAST
  13. PANTOPRAZOLE [Concomitant]
     Active Substance: PANTOPRAZOLE
  14. ALBUTEROL [Concomitant]
     Active Substance: ALBUTEROL
  15. MYRBETRIQ [Concomitant]
     Active Substance: MIRABEGRON
  16. MECLIZINE [Concomitant]
     Active Substance: MECLIZINE HYDROCHLORIDE
  17. MAGNESIUM [Concomitant]
     Active Substance: MAGNESIUM
  18. LOTEMAX [Concomitant]
     Active Substance: LOTEPREDNOL ETABONATE
  19. Ester-c [Concomitant]
  20. SUCRALFATE [Concomitant]
     Active Substance: SUCRALFATE
  21. Betahistine Hcl [Concomitant]
  22. CALCIUM [Concomitant]
     Active Substance: CALCIUM
  23. TOPAMAX [Concomitant]
     Active Substance: TOPIRAMATE
  24. CYCLOBENZAPRINE [Concomitant]
     Active Substance: CYCLOBENZAPRINE
  25. PRAVACHOL [Concomitant]
     Active Substance: PRAVASTATIN SODIUM
  26. VITAMIN D [Concomitant]
     Active Substance: VITAMIN D NOS
  27. ZINC [Concomitant]
     Active Substance: ZINC
  28. BENTYL [Concomitant]
     Active Substance: DICYCLOMINE HYDROCHLORIDE
  29. EVOXAC [Concomitant]
     Active Substance: CEVIMELINE HYDROCHLORIDE
  30. ZETIA [Concomitant]
     Active Substance: EZETIMIBE
  31. TRIAMTERENE [Concomitant]
     Active Substance: TRIAMTERENE
  32. LAMICTAL [Concomitant]
     Active Substance: LAMOTRIGINE
  33. TIROSINT [Concomitant]
     Active Substance: LEVOTHYROXINE SODIUM
  34. ALBUTEROL SULFATE [Concomitant]
     Active Substance: ALBUTEROL SULFATE
  35. PANTOPRAZOLE SODIUM [Concomitant]
     Active Substance: PANTOPRAZOLE SODIUM
  36. MECLIZINE HYDROCHLORIDE [Concomitant]
     Active Substance: MECLIZINE HYDROCHLORIDE
  37. DIPHENHYDRAMINE HYDROCHLORIDE [Concomitant]
     Active Substance: DIPHENHYDRAMINE HYDROCHLORIDE

REACTIONS (18)
  - Pneumonia [Recovered/Resolved]
  - Meningitis aseptic [Unknown]
  - Food allergy [Unknown]
  - Burn infection [Unknown]
  - COVID-19 [Unknown]
  - Weight increased [Unknown]
  - Respiratory tract infection [Unknown]
  - Multiple allergies [Unknown]
  - Stress [Unknown]
  - Product dose omission issue [Unknown]
  - Weight decreased [Unknown]
  - Upper respiratory tract infection [Unknown]
  - Asthma [Unknown]
  - Sinusitis [Unknown]
  - Feeling abnormal [Unknown]
  - Insomnia [Unknown]
  - Infusion site swelling [Unknown]
  - Fatigue [Unknown]

NARRATIVE: CASE EVENT DATE: 20220826
